FAERS Safety Report 6243999-3 (Version None)
Quarter: 2009Q2

REPORT INFORMATION
  Report Type: 
  Country: None (occurrence: None)
  Receive Date: 20090624
  Receipt Date: 20090612
  Transmission Date: 20091009
  Serious: Yes (Other)
  Sender: FDA-Public Use
  Company Number: US-PFIZER INC-2009219706

PATIENT
  Sex: Female
  Weight: 63.502 kg

DRUGS (3)
  1. CHANTIX [Suspect]
     Indication: SMOKING CESSATION THERAPY
     Dosage: UNK
     Dates: start: 20090423
  2. SPIRIVA [Concomitant]
     Dosage: 1 PUFF DAILY
     Route: 055
  3. ADVAIR HFA [Concomitant]
     Dosage: 1 PUFF DAILY
     Route: 055

REACTIONS (7)
  - ERYTHEMA [None]
  - FACIAL PAIN [None]
  - INSOMNIA [None]
  - MUSCLE SPASMS [None]
  - NIGHTMARE [None]
  - RASH [None]
  - SWELLING FACE [None]
